FAERS Safety Report 9525332 (Version 1)
Quarter: 2013Q1

REPORT INFORMATION
  Report Type: Spontaneous
  Country: US (occurrence: None)
  Receive Date: 20130314
  Receipt Date: 20130314
  Transmission Date: 20140127
  Serious: No
  Sender: FDA-Public Use
  Company Number: 1212USA001814

PATIENT
  Age: 60 Year
  Sex: Female

DRUGS (3)
  1. VICTRELIS ( BOCEPREVIR) CAPSULE, 200 MG [Suspect]
     Indication: HEPATITIS C
     Route: 048
     Dates: start: 20121114
  2. RIBASPHERE (RIBAVIRIN) [Suspect]
     Route: 048
     Dates: start: 20121023
  3. PEGASYS (PEGINTERFERON ALFA-2A) [Suspect]
     Dates: start: 20121023

REACTIONS (4)
  - Diarrhoea [None]
  - Fatigue [None]
  - Nausea [None]
  - Decreased appetite [None]
